FAERS Safety Report 4409722-X (Version None)
Quarter: 2004Q3

REPORT INFORMATION
  Report Type: 
  Country: None (occurrence: None)
  Receive Date: 20040723
  Receipt Date: 20040712
  Transmission Date: 20050211
  Serious: Yes (Hospitalization)
  Sender: FDA-Public Use
  Company Number: HQWYE120917NOV03

PATIENT
  Age: 19 Year
  Sex: Male
  Weight: 41.6 kg

DRUGS (20)
  1. RAPAMUNE [Suspect]
     Indication: IMMUNOSUPPRESSION
     Dosage: SEE IMAGE
     Route: 048
     Dates: start: 20030110
  2. RAPAMUNE [Suspect]
     Indication: RENAL TRANSPLANT
     Dosage: SEE IMAGE
     Route: 048
     Dates: start: 20030110
  3. PROGRAF [Concomitant]
  4. PREDNISONE [Concomitant]
  5. PROTONIX [Concomitant]
  6. NORVASC [Concomitant]
  7. BACTRIM [Concomitant]
  8. LASIX [Concomitant]
  9. LIPITOR [Concomitant]
  10. FERROUS SULFATE TAB [Concomitant]
  11. MAGNESIUM OXIDE (MAGNESIUIM OXIDE) [Concomitant]
  12. POTASSIUM CHLORIDE (POTASSIUIM CHLORIDE) [Concomitant]
  13. NEPHRO-VITE (ASCORBIC ACID/FOLIC ACID /VITAMIN B NOS) [Concomitant]
  14. K-PHOS  NEUTRAL (POTASSIUM PHOSPHATE MONOBASIC/SODIUM PHOSPHATE DIBASI [Concomitant]
  15. AMLODIPINE [Concomitant]
  16. EPOGEN [Concomitant]
  17. METOCLOPRAMIDE [Concomitant]
  18. LACTULOSE [Concomitant]
  19. OMEPRAZOLE [Concomitant]
  20. ZYVOX [Concomitant]

REACTIONS (21)
  - ANURIA [None]
  - BLOOD GLUCOSE INCREASED [None]
  - CANDIDIASIS [None]
  - CARDIOMEGALY [None]
  - CATHETER SEPSIS [None]
  - CENTRAL LINE INFECTION [None]
  - CITROBACTER INFECTION [None]
  - DIFFICULT TO WEAN FROM VENTILATOR [None]
  - FUNGAL INFECTION [None]
  - HAEMODIALYSIS [None]
  - HYPERVOLAEMIA [None]
  - HYPOTENSION [None]
  - LABILE BLOOD PRESSURE [None]
  - OBSTRUCTIVE AIRWAYS DISORDER [None]
  - OEDEMA PERIPHERAL [None]
  - PERICARDIAL EFFUSION [None]
  - PNEUMONIA [None]
  - PULMONARY OEDEMA [None]
  - RENAL TUBULAR NECROSIS [None]
  - RESPIRATORY DISTRESS [None]
  - STAPHYLOCOCCAL INFECTION [None]
